FAERS Safety Report 15243322 (Version 4)
Quarter: 2019Q1

REPORT INFORMATION
  Report Type: Report from Study
  Country: US (occurrence: US)
  Receive Date: 20180806
  Receipt Date: 20190215
  Transmission Date: 20190417
  Serious: Yes (Other)
  Sender: FDA-Public Use
  Company Number: PHEH2018US032278

PATIENT
  Age: 55 Year
  Sex: Female
  Weight: 58.5 kg

DRUGS (6)
  1. GABAPENTIN. [Concomitant]
     Active Substance: GABAPENTIN
     Dosage: 800 MG, TID
     Route: 048
  2. MULTIVITAMINS [Concomitant]
     Active Substance: VITAMINS
     Indication: PRODUCT USED FOR UNKNOWN INDICATION
     Dosage: 1 DF, QD
     Route: 048
  3. GILENYA [Suspect]
     Active Substance: FINGOLIMOD HYDROCHLORIDE
     Indication: MULTIPLE SCLEROSIS
     Dosage: 0.5 MG, QD
     Route: 048
     Dates: start: 20170922
  4. GABAPENTIN. [Concomitant]
     Active Substance: GABAPENTIN
     Indication: PRODUCT USED FOR UNKNOWN INDICATION
     Dosage: 400 MG, UNK
     Route: 065
  5. BETASERON//INTERFERON BETA-1B [Concomitant]
     Indication: PRODUCT USED FOR UNKNOWN INDICATION
     Route: 065
  6. COPAXONE [Concomitant]
     Active Substance: GLATIRAMER ACETATE
     Indication: PRODUCT USED FOR UNKNOWN INDICATION
     Route: 065

REACTIONS (5)
  - Hypoaesthesia [Recovering/Resolving]
  - Burning sensation [Recovering/Resolving]
  - Muscle spasticity [Recovered/Resolved with Sequelae]
  - Multiple sclerosis relapse [Not Recovered/Not Resolved]
  - Pain in extremity [Recovering/Resolving]

NARRATIVE: CASE EVENT DATE: 201805
